FAERS Safety Report 23467348 (Version 7)
Quarter: 2025Q3

REPORT INFORMATION
  Report Type: Report from Study
  Country: PE (occurrence: PE)
  Receive Date: 20240201
  Receipt Date: 20250922
  Transmission Date: 20251021
  Serious: Yes (Hospitalization, Other)
  Sender: NOVARTIS
  Company Number: PE-002147023-NVSC2024PE018265

PATIENT
  Age: 83 Year
  Sex: Female

DRUGS (6)
  1. KISQALI [Suspect]
     Active Substance: RIBOCICLIB SUCCINATE
     Indication: Breast cancer metastatic
     Dosage: 400 MG, QD
     Route: 048
     Dates: start: 20230101
  2. KISQALI [Suspect]
     Active Substance: RIBOCICLIB SUCCINATE
     Dosage: 200 MG, QD
     Route: 048
     Dates: start: 202301
  3. KISQALI [Suspect]
     Active Substance: RIBOCICLIB SUCCINATE
     Dosage: 600 MG, QD
     Route: 048
     Dates: start: 20230109, end: 20240101
  4. KISQALI [Suspect]
     Active Substance: RIBOCICLIB SUCCINATE
     Dosage: 400 MG, QD (2 TABLETS) (ONCE A DAY)
     Route: 048
  5. KISQALI [Suspect]
     Active Substance: RIBOCICLIB SUCCINATE
     Dosage: 600 MG, QD
     Route: 048
     Dates: end: 20240219
  6. KISQALI [Suspect]
     Active Substance: RIBOCICLIB SUCCINATE
     Dosage: 200 MG, QD
     Route: 048
     Dates: start: 20240219

REACTIONS (16)
  - Pulmonary fibrosis [Unknown]
  - Infection [Unknown]
  - Fall [Unknown]
  - Head injury [Unknown]
  - Sepsis [Unknown]
  - Cerebral haemorrhage [Unknown]
  - Cholecystitis [Unknown]
  - Pneumonia [Unknown]
  - White blood cell count decreased [Unknown]
  - Decreased immune responsiveness [Unknown]
  - Illness [Unknown]
  - Malaise [Unknown]
  - Abdominal pain upper [Unknown]
  - Feeding disorder [Unknown]
  - Insomnia [Unknown]
  - Dysphagia [Unknown]

NARRATIVE: CASE EVENT DATE: 20231201
